FAERS Safety Report 6931425-8 (Version None)
Quarter: 2010Q3

REPORT INFORMATION
  Report Type: 
  Country: None (occurrence: None)
  Receive Date: 20100819
  Receipt Date: 20100806
  Transmission Date: 20110219
  Serious: Yes (Hospitalization, Other)
  Sender: FDA-Public Use
  Company Number: US-ELI_LILLY_AND_COMPANY-US201006007600

PATIENT
  Sex: Female

DRUGS (2)
  1. HUMULIN 70/30 [Suspect]
     Indication: DIABETES MELLITUS
     Dosage: 35 U, UNKNOWN
     Route: 065
  2. LANTUS [Concomitant]
     Dosage: UNK, UNKNOWN
     Route: 065

REACTIONS (6)
  - ANGINA UNSTABLE [None]
  - ARTHRITIS [None]
  - CORONARY ARTERY DISEASE [None]
  - FOREIGN BODY [None]
  - INCORRECT DOSE ADMINISTERED [None]
  - SCAR [None]
